FAERS Safety Report 18796402 (Version 2)
Quarter: 2021Q1

REPORT INFORMATION
  Report Type: Spontaneous
  Country: DE (occurrence: DE)
  Receive Date: 20210127
  Receipt Date: 20210201
  Transmission Date: 20210419
  Serious: Yes (Other)
  Sender: FDA-Public Use
  Company Number: DE-GILEAD-2021-0514654

PATIENT
  Age: 77 Year
  Sex: Male

DRUGS (1)
  1. VEKLURY [Suspect]
     Active Substance: REMDESIVIR
     Indication: PRODUCT USED FOR UNKNOWN INDICATION
     Dosage: SHORT INFUSION OF 100?MG VIALS (5 MG/ML)
     Route: 042

REACTIONS (1)
  - Bilirubin conjugated increased [Unknown]

NARRATIVE: CASE EVENT DATE: 20201224
